FAERS Safety Report 13870582 (Version 1)
Quarter: 2017Q3

REPORT INFORMATION
  Report Type: Spontaneous
  Country: US (occurrence: None)
  Receive Date: 20170811
  Receipt Date: 20170811
  Transmission Date: 20171127
  Serious: Yes (Hospitalization)
  Sender: FDA-Public Use
  Company Number: None

PATIENT
  Age: 69 Year
  Sex: Female

DRUGS (19)
  1. TRIAMT [Concomitant]
  2. SIMVASTATIN. [Concomitant]
     Active Substance: SIMVASTATIN
  3. SYMBICORT [Concomitant]
     Active Substance: BUDESONIDE\FORMOTEROL FUMARATE DIHYDRATE
  4. VENTOLINAI [Concomitant]
  5. SEROQUEL [Concomitant]
     Active Substance: QUETIAPINE FUMARATE
  6. XELJANZ [Suspect]
     Active Substance: TOFACITINIB CITRATE
     Indication: RHEUMATOID ARTHRITIS
     Route: 048
     Dates: start: 20160520
  7. WELCHOL [Concomitant]
     Active Substance: COLESEVELAM HYDROCHLORIDE
  8. LIPITOR [Concomitant]
     Active Substance: ATORVASTATIN CALCIUM
  9. VITAMIN B12 [Concomitant]
     Active Substance: CYANOCOBALAMIN
  10. NIASPAN [Concomitant]
     Active Substance: NIACIN
  11. LISINOPRIL. [Concomitant]
     Active Substance: LISINOPRIL
  12. PLAVIX [Concomitant]
     Active Substance: CLOPIDOGREL BISULFATE
  13. SULFALAZINE [Concomitant]
  14. DILTIAZEM. [Concomitant]
     Active Substance: DILTIAZEM
  15. MUCINEX [Concomitant]
     Active Substance: GUAIFENESIN
  16. VITAMIN D3 [Concomitant]
     Active Substance: CHOLECALCIFEROL
  17. GABAPENTIN. [Concomitant]
     Active Substance: GABAPENTIN
  18. ZOLOFT [Concomitant]
     Active Substance: SERTRALINE HYDROCHLORIDE
  19. ZALEPLON. [Concomitant]
     Active Substance: ZALEPLON

REACTIONS (2)
  - Ankle fracture [None]
  - Fall [None]

NARRATIVE: CASE EVENT DATE: 2017
